FAERS Safety Report 9161981 (Version 1)
Quarter: 2013Q1

REPORT INFORMATION
  Report Type: Spontaneous
  Country: CN (occurrence: CN)
  Receive Date: 20130314
  Receipt Date: 20130314
  Transmission Date: 20140127
  Serious: Yes (Death)
  Sender: FDA-Public Use
  Company Number: CN-JNJFOC-20130306231

PATIENT
  Sex: 0

DRUGS (7)
  1. DOXORUBICIN [Suspect]
     Indication: T-CELL LYMPHOMA
     Route: 042
  2. CYCLOPHOSPHAMIDE [Suspect]
     Indication: T-CELL LYMPHOMA
     Route: 065
  3. DEXAMETHASONE [Suspect]
     Indication: T-CELL LYMPHOMA
     Route: 065
  4. VINCRISTINE [Suspect]
     Indication: T-CELL LYMPHOMA
     Route: 065
  5. PREDNISONE [Suspect]
     Indication: T-CELL LYMPHOMA
     Route: 065
  6. CYTARABINE [Suspect]
     Indication: T-CELL LYMPHOMA
     Route: 065
  7. METHOTREXATE [Suspect]
     Indication: T-CELL LYMPHOMA
     Route: 065

REACTIONS (1)
  - Pneumonia [Fatal]
